FAERS Safety Report 24545838 (Version 2)
Quarter: 2024Q4

REPORT INFORMATION
  Report Type: Report from Study
  Country: MX (occurrence: MX)
  Receive Date: 20241024
  Receipt Date: 20241107
  Transmission Date: 20250114
  Serious: Yes (Hospitalization, Other)
  Sender: ALEXION PHARMACEUTICALS
  Company Number: MX-AstraZeneca-2024A182712

PATIENT
  Age: 67 Day
  Weight: 6.127 kg

DRUGS (12)
  1. NEXIUM [Suspect]
     Active Substance: ESOMEPRAZOLE MAGNESIUM
     Dosage: 1 SACHET DILUTED IN 5 ML EVERY 24 HOURS FOR 10 DAYS
  2. NEXIUM [Suspect]
     Active Substance: ESOMEPRAZOLE MAGNESIUM
     Dosage: 1 SACHET DILUTED IN 5 ML EVERY 24 HOURS FOR 10 DAYS
  3. NEXIUM [Suspect]
     Active Substance: ESOMEPRAZOLE MAGNESIUM
     Dosage: 1 SACHET DILUTED IN 5 ML EVERY 24 HOURS FOR 10 DAYS
  4. NEXIUM [Suspect]
     Active Substance: ESOMEPRAZOLE MAGNESIUM
     Dosage: 1 SACHET DILUTED IN 5 ML EVERY 24 HOURS FOR 10 DAYS
  5. FLUTICASONE [Concomitant]
     Active Substance: FLUTICASONE
     Dosage: 2 UNK, QD
  6. FLUTICASONE [Concomitant]
     Active Substance: FLUTICASONE
     Dosage: 2 UNK, QD
  7. UNAMOL [Concomitant]
  8. VITAMIN D3 [Concomitant]
     Active Substance: CHOLECALCIFEROL
  9. PALIVIZUMAB [Suspect]
     Active Substance: PALIVIZUMAB
     Indication: Respiratory syncytial virus infection
     Dosage: 50MG/0.5ML
  10. PALIVIZUMAB [Suspect]
     Active Substance: PALIVIZUMAB
     Dosage: 50MG/0.5ML
  11. PALIVIZUMAB [Suspect]
     Active Substance: PALIVIZUMAB
     Dosage: 50MG/0.5ML
  12. PALIVIZUMAB [Suspect]
     Active Substance: PALIVIZUMAB
     Dosage: 50MG/0.5ML

REACTIONS (4)
  - Gastrooesophageal reflux disease [Not Recovered/Not Resolved]
  - Regurgitation [Recovered/Resolved]
  - Intestinal obstruction [Unknown]
  - Stenosis [Unknown]
